FAERS Safety Report 6323453-0 (Version None)
Quarter: 2009Q3

REPORT INFORMATION
  Report Type: 
  Country: None (occurrence: None)
  Receive Date: 20090824
  Receipt Date: 20090320
  Transmission Date: 20100115
  Serious: No
  Sender: FDA-Public Use
  Company Number: US-ABBOTT-09P-163-0564274-00

PATIENT
  Sex: Female
  Weight: 51.756 kg

DRUGS (6)
  1. NIASPAN [Suspect]
     Indication: BLOOD CHOLESTEROL INCREASED
     Dates: start: 20081001
  2. CORTISONE ACETATE [Suspect]
     Indication: OEDEMA PERIPHERAL
     Route: 050
  3. DIOVAN [Concomitant]
     Indication: HYPERTENSION
  4. HYDROCHLOROTHIAZIDE [Concomitant]
     Indication: HYPERTENSION
  5. SYNTHROID [Concomitant]
     Indication: HYPOTHYROIDISM
  6. METFORMIN HCL [Concomitant]
     Indication: DIABETES MELLITUS

REACTIONS (6)
  - BLOOD GLUCOSE INCREASED [None]
  - FATIGUE [None]
  - FLUSHING [None]
  - OEDEMA PERIPHERAL [None]
  - PALPITATIONS [None]
  - VISION BLURRED [None]
